FAERS Safety Report 19959198 (Version 1)
Quarter: 2021Q4

REPORT INFORMATION
  Report Type: Spontaneous
  Country: AT (occurrence: AT)
  Receive Date: 20211015
  Receipt Date: 20211015
  Transmission Date: 20220304
  Serious: Yes (Other)
  Sender: FDA-Public Use
  Company Number: AT-UCBSA-2021029417

PATIENT
  Age: 9 Year
  Sex: Female

DRUGS (6)
  1. LEVETIRACETAM [Suspect]
     Active Substance: LEVETIRACETAM
     Indication: Seizure
     Dosage: 30 MILLIGRAM/KILOGRAM/DAY
  2. LEVETIRACETAM [Suspect]
     Active Substance: LEVETIRACETAM
     Dosage: 50 MILLIGRAM/KILOGRAM/DAY
  3. LEVETIRACETAM [Suspect]
     Active Substance: LEVETIRACETAM
     Dosage: 70 MILLIGRAM/KILOGRAM/DAY
  4. CLOBAZAM [Suspect]
     Active Substance: CLOBAZAM
     Indication: Seizure
     Dosage: 0.15 MILLIGRAM/KILOGRAM/DAY
  5. MIDAZOLAM [Suspect]
     Active Substance: MIDAZOLAM
     Indication: Seizure
     Dosage: 10 MILLIGRAM
     Route: 002
  6. MIGLUSTAT [Concomitant]
     Active Substance: MIGLUSTAT
     Indication: Product used for unknown indication
     Dosage: 400 MG/M2

REACTIONS (6)
  - Constipation [Unknown]
  - Seizure [Recovering/Resolving]
  - Aphasia [Unknown]
  - Multiple-drug resistance [Unknown]
  - Vomiting [Unknown]
  - Diarrhoea [Unknown]
